FAERS Safety Report 7703384-1 (Version None)
Quarter: 2011Q3

REPORT INFORMATION
  Report Type: 
  Country: None (occurrence: None)
  Receive Date: 20110823
  Receipt Date: 20110809
  Transmission Date: 20111222
  Serious: No
  Sender: FDA-Public Use
  Company Number: US-B.I. PHARMACEUTICALS,INC./RIDGEFIELD-2011-BP-18098BP

PATIENT
  Age: 82 Year
  Sex: Female

DRUGS (12)
  1. GLYBURIDE [Concomitant]
  2. SYNTHROID [Concomitant]
  3. PRADAXA [Suspect]
     Indication: ATRIAL FIBRILLATION
     Dosage: 150 MG
     Route: 048
     Dates: start: 20110606, end: 20110620
  4. METFORMIN HCL [Concomitant]
  5. COZAAR [Concomitant]
  6. DILTIAZEM [Concomitant]
  7. JANUVIA [Concomitant]
  8. SIMAVASTATIN [Concomitant]
  9. PRADAXA [Suspect]
     Dosage: 300 MG
     Route: 048
     Dates: start: 20110621
  10. LOSARTAN [Concomitant]
  11. SPIRONOLACTONE [Concomitant]
  12. METOPROLOL [Concomitant]
     Dosage: 150 MG

REACTIONS (2)
  - DYSPEPSIA [None]
  - BLOOD GLUCOSE FLUCTUATION [None]
